FAERS Safety Report 4840064-4 (Version None)
Quarter: 2005Q4

REPORT INFORMATION
  Report Type: 
  Country: None (occurrence: None)
  Receive Date: 20051129
  Receipt Date: 20050303
  Transmission Date: 20060501
  Serious: Yes (Death, Hospitalization)
  Sender: FDA-Public Use
  Company Number: PHFR2005GB01092

PATIENT
  Age: 78 Year
  Sex: Female
  Weight: 68 kg

DRUGS (1)
  1. DICLOFENAC [Suspect]
     Indication: ANALGESIC EFFECT
     Dosage: 50 MG, TID
     Route: 048
     Dates: start: 20050120, end: 20050126

REACTIONS (6)
  - BIOPSY PLEURA ABNORMAL [None]
  - GASTRIC ULCER [None]
  - GASTRIC ULCER PERFORATION [None]
  - LUNG NEOPLASM MALIGNANT [None]
  - PERITONITIS [None]
  - PLEURAL EFFUSION [None]
